FAERS Safety Report 21598245 (Version 1)
Quarter: 2022Q4

REPORT INFORMATION
  Report Type: Spontaneous
  Country: PL (occurrence: None)
  Receive Date: 20221115
  Receipt Date: 20221115
  Transmission Date: 20230113
  Serious: Yes (Other)
  Sender: FDA-Public Use
  Company Number: 2022A373804

PATIENT

DRUGS (1)
  1. OLAPARIB [Suspect]
     Active Substance: OLAPARIB
     Route: 048

REACTIONS (7)
  - Ovarian cancer stage III [Unknown]
  - Malignant neoplasm progression [Unknown]
  - Hepatic cyst [Unknown]
  - Biliary dilatation [Unknown]
  - Splenic lesion [Unknown]
  - Hernia [Unknown]
  - Peritoneal disorder [Unknown]
